FAERS Safety Report 4575818-5 (Version None)
Quarter: 2005Q1

REPORT INFORMATION
  Report Type: 
  Country: None (occurrence: None)
  Receive Date: 20050204
  Receipt Date: 20050125
  Transmission Date: 20050727
  Serious: Yes (Life-Threatening)
  Sender: FDA-Public Use
  Company Number: 2005013644

PATIENT
  Age: 59 Year
  Sex: Male

DRUGS (8)
  1. NEURONTIN [Suspect]
     Indication: DIABETIC NEUROPATHY
     Dosage: 900 MG (300 MG, 3 IN 1 D), ORAL
     Route: 048
     Dates: start: 20041129
  2. OMEPRAZOLE [Suspect]
     Indication: DYSPEPSIA
     Dosage: 20 MG (20 MG,  1 IN 1 D), ORAL
     Route: 048
     Dates: start: 20040301
  3. INSULIN HUMAN INJECTION, ISOPHANE (INSULIN HUMAN INJECTION, ISOPHANE) [Suspect]
     Indication: ILL-DEFINED DISORDER
     Dosage: SUBCUTANEOUS
     Route: 058
     Dates: start: 20000101
  4. INSULIN [Suspect]
     Indication: ILL-DEFINED DISORDER
     Dosage: SUBCUTANEOUS
     Route: 058
     Dates: start: 20000101
  5. POLYSPECTRAN OS (BACITRACIN, HYDROCORTISONE ACETATE, NEOMYCIN SULFATE, [Concomitant]
  6. ALFUZOSIN (ALFUZOSIN) [Concomitant]
  7. BLOOD AND RELATED PRODUCTS (BLOOD AND RELATED PRODUCTS) [Concomitant]
  8. PREDNISONE [Concomitant]

REACTIONS (4)
  - COMA [None]
  - HYPOGLYCAEMIA [None]
  - LOSS OF CONSCIOUSNESS [None]
  - TREMOR [None]
